FAERS Safety Report 7561804-X (Version None)
Quarter: 2011Q2

REPORT INFORMATION
  Report Type: 
  Country: None (occurrence: None)
  Receive Date: 20110621
  Receipt Date: 20110617
  Transmission Date: 20111010
  Serious: Yes (Other)
  Sender: FDA-Public Use
  Company Number: CHPA2011US08217

PATIENT
  Age: 69 Year
  Sex: Female
  Weight: 58.957 kg

DRUGS (3)
  1. NICOTINE [Suspect]
     Indication: SMOKING CESSATION THERAPY
     Dosage: 7 MG, QD
     Route: 062
  2. NICOTINE [Suspect]
     Dosage: 21 MG, QD
     Route: 062
  3. NICOTINE [Suspect]
     Dosage: 14 MG, QD
     Route: 062

REACTIONS (1)
  - SYSTEMIC LUPUS ERYTHEMATOSUS [None]
